FAERS Safety Report 18440577 (Version 1)
Quarter: 2020Q4

REPORT INFORMATION
  Report Type: Spontaneous
  Country: US (occurrence: US)
  Receive Date: 20201029
  Receipt Date: 20201029
  Transmission Date: 20210114
  Serious: Yes (Life-Threatening)
  Sender: FDA-Public Use
  Company Number: None

PATIENT
  Age: 48 Year
  Sex: Female
  Weight: 67.5 kg

DRUGS (8)
  1. LINZESS [Concomitant]
     Active Substance: LINACLOTIDE
  2. PROTONIX [Concomitant]
     Active Substance: PANTOPRAZOLE SODIUM
  3. VALTREX [Concomitant]
     Active Substance: VALACYCLOVIR HYDROCHLORIDE
  4. PRISTIQ EXTENDED-RELEASE [Concomitant]
     Active Substance: DESVENLAFAXINE SUCCINATE
  5. VITAMIN D [Concomitant]
     Active Substance: VITAMIN D NOS
  6. GABAPENTIN. [Concomitant]
     Active Substance: GABAPENTIN
  7. IBUPROFRIN [Concomitant]
  8. BUPROPION HCL 75 MG 2 TIMES DAILY [Suspect]
     Active Substance: BUPROPION HYDROCHLORIDE
     Indication: DEPRESSION
     Dosage: ?          QUANTITY:2 TABLET(S);?
     Route: 048
     Dates: start: 20191001, end: 20200630

REACTIONS (7)
  - Agitation [None]
  - Mood swings [None]
  - Anxiety [None]
  - Depression [None]
  - Behaviour disorder [None]
  - Anger [None]
  - Hostility [None]

NARRATIVE: CASE EVENT DATE: 20191110
